FAERS Safety Report 7404376-2 (Version None)
Quarter: 2011Q2

REPORT INFORMATION
  Report Type: 
  Country: None (occurrence: None)
  Receive Date: 20110408
  Receipt Date: 20110228
  Transmission Date: 20111010
  Serious: Yes (Other)
  Sender: FDA-Public Use
  Company Number: PL-GENENTECH-316161

PATIENT
  Age: 60 Year
  Sex: Female

DRUGS (1)
  1. MABTHERA [Suspect]
     Indication: DIFFUSE LARGE B-CELL LYMPHOMA
     Dosage: UNK
     Route: 065
     Dates: start: 20100120

REACTIONS (24)
  - NEUTROPENIA [None]
  - ORAL HERPES [None]
  - BONE MARROW FAILURE [None]
  - ALANINE AMINOTRANSFERASE INCREASED [None]
  - MUCOSAL ATROPHY [None]
  - DIARRHOEA [None]
  - UPPER RESPIRATORY TRACT INFECTION [None]
  - STOMATITIS [None]
  - COUGH [None]
  - INFECTION [None]
  - PULMONARY FIBROSIS [None]
  - BLOOD LACTATE DEHYDROGENASE INCREASED [None]
  - GAMMA-GLUTAMYLTRANSFERASE INCREASED [None]
  - LUNG CONSOLIDATION [None]
  - PYREXIA [None]
  - ASTHENIA [None]
  - BLOOD DISORDER [None]
  - OSTEOSCLEROSIS [None]
  - BLOOD ALKALINE PHOSPHATASE INCREASED [None]
  - LUNG DISORDER [None]
  - OROPHARYNGEAL PAIN [None]
  - BETA 2 MICROGLOBULIN INCREASED [None]
  - LUNG INFILTRATION [None]
  - DYSPEPSIA [None]
